FAERS Safety Report 24055746 (Version 1)
Quarter: 2024Q3

REPORT INFORMATION
  Report Type: Spontaneous
  Country: US (occurrence: None)
  Receive Date: 20240703
  Receipt Date: 20240703
  Transmission Date: 20241017
  Serious: Yes (Hospitalization)
  Sender: Public
  Company Number: None

PATIENT
  Age: 56 Year
  Sex: Female
  Weight: 94.05 kg

DRUGS (3)
  1. ZEPBOUND [Suspect]
     Active Substance: TIRZEPATIDE
     Indication: Weight decreased
  2. LEXAPRO [Concomitant]
  3. AMBIEN [Concomitant]

REACTIONS (1)
  - Atrioventricular block complete [None]

NARRATIVE: CASE EVENT DATE: 20240703
